FAERS Safety Report 6451450-3 (Version None)
Quarter: 2009Q4

REPORT INFORMATION
  Report Type: 
  Country: None (occurrence: None)
  Receive Date: 20091123
  Receipt Date: 20081223
  Transmission Date: 20100525
  Serious: No
  Sender: FDA-Public Use
  Company Number: US-BRISTOL-MYERS SQUIBB COMPANY-14453013

PATIENT
  Age: 66 Year
  Weight: 61 kg

DRUGS (5)
  1. AVALIDE [Suspect]
     Indication: HYPERTENSION
     Dosage: 1 DOSAGE FORM: 300/12.5MG;STARTED TWO YEARS AGO
  2. ASPIRIN [Concomitant]
  3. MULTI-VITAMIN [Concomitant]
  4. FISH OIL [Concomitant]
  5. VITAMIN D [Concomitant]

REACTIONS (1)
  - ALOPECIA [None]
